FAERS Safety Report 23644425 (Version 1)
Quarter: 2024Q1

REPORT INFORMATION
  Report Type: Spontaneous
  Country: US (occurrence: US)
  Receive Date: 20240318
  Receipt Date: 20240318
  Transmission Date: 20240409
  Serious: No
  Sender: FDA-Public Use
  Company Number: US-SA-SAC20240311001112

PATIENT
  Age: 32 Year
  Sex: Female

DRUGS (1)
  1. DUPIXENT [Suspect]
     Active Substance: DUPILUMAB
     Indication: Dermatitis
     Dosage: 300 MG, QOW
     Route: 058

REACTIONS (6)
  - Injection site erythema [Recovered/Resolved]
  - Pruritus [Unknown]
  - Injection site mass [Recovered/Resolved]
  - Skin exfoliation [Unknown]
  - Erythema [Unknown]
  - Product use in unapproved indication [Unknown]
